FAERS Safety Report 5760762-8 (Version None)
Quarter: 2008Q2

REPORT INFORMATION
  Report Type: 
  Country: None (occurrence: None)
  Receive Date: 20080606
  Receipt Date: 20080528
  Transmission Date: 20081010
  Serious: Yes (Other)
  Sender: FDA-Public Use
  Company Number: US-TYCO HEALTHCARE/MALLINCKRODT-T200800957

PATIENT

DRUGS (4)
  1. OPTIMARK [Suspect]
     Indication: NUCLEAR MAGNETIC RESONANCE IMAGING
     Dosage: UNK, SINGLE
     Dates: start: 20050307, end: 20050307
  2. OPTIMARK [Suspect]
     Dosage: UNK, SINGLE
     Dates: start: 20061215, end: 20061215
  3. OPTIMARK [Suspect]
     Dosage: UNK, SINGLE
     Dates: start: 20070119, end: 20070119
  4. OPTIMARK [Suspect]
     Dosage: UNK, UNK
     Dates: start: 20070330, end: 20070330

REACTIONS (1)
  - NEPHROGENIC SYSTEMIC FIBROSIS [None]
